FAERS Safety Report 8595915 (Version 3)
Quarter: 2013Q4

REPORT INFORMATION
  Report Type: Spontaneous
  Country: US (occurrence: US)
  Receive Date: 20120605
  Receipt Date: 20131204
  Transmission Date: 20140711
  Serious: Yes (Disabling, Other)
  Sender: FDA-Public Use
  Company Number: US-ASTRAZENECA-2012SE35238

PATIENT
  Age: 16904 Day
  Sex: Female

DRUGS (30)
  1. NEXIUM [Suspect]
     Route: 048
     Dates: start: 20060125
  2. PEPTO-BISMOL [Concomitant]
  3. ABILIFY [Concomitant]
     Route: 048
  4. ACICLOVIR [Concomitant]
     Route: 048
  5. AMITRIPTYLINE [Concomitant]
     Route: 048
  6. BUSPIRONE [Concomitant]
     Indication: ANXIETY
     Route: 048
     Dates: start: 20060616
  7. SPRINTEC [Concomitant]
     Dosage: 0.25-0.35 MCG
     Route: 048
  8. FENOFIBRATE [Concomitant]
     Route: 048
  9. FERROUS SULFATE [Concomitant]
     Route: 048
  10. NEURONTIN [Concomitant]
     Indication: RESTLESS LEGS SYNDROME
     Route: 048
  11. LISINOPRIL [Concomitant]
     Route: 048
  12. METFORMIN [Concomitant]
     Route: 048
  13. SINGULAIR [Concomitant]
     Route: 048
  14. OMEPRAZOLE [Concomitant]
     Route: 048
     Dates: start: 20080630
  15. OMEPRAZOLE [Concomitant]
     Route: 048
     Dates: start: 20101214
  16. PRAZOSIN [Concomitant]
     Route: 048
  17. SERTRALINE [Concomitant]
     Route: 048
  18. SIMVASTATIN [Concomitant]
     Route: 048
  19. CALCIUM CARBONATE [Concomitant]
  20. CELEBREX [Concomitant]
     Dates: start: 20071020
  21. HYDROCHLOROTHIAZIDE/ LISINOPRIL [Concomitant]
     Dosage: 12.5/ 20 MG
  22. EFFEXOR XR [Concomitant]
     Dosage: 225 TO 300 MG A DAY
     Dates: start: 20060616
  23. FELDENE [Concomitant]
     Dosage: AS NEEDED
  24. ATIVAN [Concomitant]
  25. SYNTHROID [Concomitant]
     Route: 048
  26. ORTHO-CEPT [Concomitant]
     Dates: start: 20060616
  27. ATENOLOL [Concomitant]
     Dates: start: 20060616
  28. CYMBALTA [Concomitant]
     Dates: start: 20121029
  29. JANUVIA [Concomitant]
     Dates: start: 20121029
  30. SYMBICORT [Concomitant]
     Dates: start: 20080630

REACTIONS (18)
  - Type 2 diabetes mellitus [Unknown]
  - Post-traumatic stress disorder [Unknown]
  - Limb injury [Unknown]
  - Diabetic retinopathy [Unknown]
  - Diabetic nephropathy [Unknown]
  - Osteoporosis [Unknown]
  - Bone density decreased [Unknown]
  - Angina pectoris [Unknown]
  - Bone pain [Unknown]
  - Rib fracture [Unknown]
  - Hyperprolactinaemia [Unknown]
  - Hypothyroidism [Unknown]
  - Osteopenia [Unknown]
  - Vitamin D deficiency [Unknown]
  - Back pain [Unknown]
  - Wrist fracture [Unknown]
  - Hand fracture [Unknown]
  - Depression [Unknown]
